FAERS Safety Report 7794674-5 (Version None)
Quarter: 2011Q4

REPORT INFORMATION
  Report Type: 
  Country: None (occurrence: None)
  Receive Date: 20111004
  Receipt Date: 20110927
  Transmission Date: 20120403
  Serious: Yes (Other)
  Sender: FDA-Public Use
  Company Number: GB-UCBSA-042208

PATIENT
  Sex: Female

DRUGS (1)
  1. CIMZIA [Suspect]
     Dosage: 400 MG
     Route: 058
     Dates: start: 20110927

REACTIONS (4)
  - ANAPHYLACTIC REACTION [None]
  - OEDEMA MOUTH [None]
  - EYE SWELLING [None]
  - DYSPNOEA [None]
